FAERS Safety Report 6381192-4 (Version None)
Quarter: 2009Q3

REPORT INFORMATION
  Report Type: 
  Country: None (occurrence: None)
  Receive Date: 20090929
  Receipt Date: 20090805
  Transmission Date: 20100115
  Serious: No
  Sender: FDA-Public Use
  Company Number: US-TYCO HEALTHCARE/MALLINCKRODT-T200901568

PATIENT
  Sex: Female
  Weight: 58.05 kg

DRUGS (7)
  1. TECHNETIUM TC 99M SESTAMIBI [Suspect]
     Indication: CARDIAC STRESS TEST
     Dosage: UNK
     Dates: start: 20090805, end: 20090805
  2. THALLOUS CHLORIDE TL-201 [Concomitant]
     Indication: CARDIAC STRESS TEST
     Dosage: 3.61 MCI, SINGLE
     Dates: start: 20090805, end: 20090805
  3. ULTRA-TECHNEKOW [Concomitant]
     Indication: CARDIAC STRESS TEST
     Dosage: 31.1 MCI, SINGLE
     Dates: start: 20090805, end: 20090805
  4. SIMVASTATIN [Concomitant]
     Dosage: 20 MG, QD
  5. LEVOTHYROXINE SODIUM [Concomitant]
     Dosage: 88 UG, QD
  6. PREMARIN [Concomitant]
     Dosage: UNK
  7. ASPIRIN [Concomitant]
     Dosage: 81 MG, QD

REACTIONS (1)
  - DRUG INEFFECTIVE [None]
